FAERS Safety Report 6201184-5 (Version None)
Quarter: 2009Q2

REPORT INFORMATION
  Report Type: 
  Country: None (occurrence: None)
  Receive Date: 20090520
  Receipt Date: 20090511
  Transmission Date: 20091009
  Serious: Yes (Death)
  Sender: FDA-Public Use
  Company Number: 09US001325

PATIENT
  Sex: Male

DRUGS (2)
  1. IBUPROFEN [Suspect]
     Indication: OSTEOARTHRITIS
     Dosage: 200 MG, ORAL
     Route: 048
  2. ALCOHOL (ETHANOL) [Suspect]
     Dosage: EXCESSIVE AMOUNTS, ORAL
     Route: 048
     Dates: start: 20070101

REACTIONS (2)
  - ALCOHOL USE [None]
  - HEPATIC CIRRHOSIS [None]
